FAERS Safety Report 13313986 (Version 1)
Quarter: 2017Q1

REPORT INFORMATION
  Report Type: Report from Study
  Country: CA (occurrence: CA)
  Receive Date: 20170309
  Receipt Date: 20170309
  Transmission Date: 20170428
  Serious: Yes (Hospitalization)
  Sender: FDA-Public Use
  Company Number: CA-TAKEDA-2015TUS017685

PATIENT
  Age: 34 Year
  Sex: Female

DRUGS (5)
  1. CALCIUM [Concomitant]
     Active Substance: CALCIUM
     Dosage: UNK
  2. VITAMIN D [Concomitant]
     Active Substance: CHOLECALCIFEROL
     Dosage: UNK
  3. VEDOLIZUMAB [Suspect]
     Active Substance: VEDOLIZUMAB
     Dosage: 300 MG, Q4WEEKS
     Route: 042
     Dates: start: 20160229
  4. VEDOLIZUMAB [Suspect]
     Active Substance: VEDOLIZUMAB
     Indication: CROHN^S DISEASE
     Dosage: 300 MG, UNK
     Route: 042
     Dates: start: 20150702
  5. PREDNISONE. [Concomitant]
     Active Substance: PREDNISONE
     Dosage: 35 MG, UNK
     Dates: start: 20151124

REACTIONS (9)
  - Gastrooesophageal reflux disease [Unknown]
  - Off label use [Unknown]
  - Eating disorder [Unknown]
  - Vomiting [Unknown]
  - Dyspepsia [Unknown]
  - Crohn^s disease [Unknown]
  - Hospitalisation [Unknown]
  - Abdominal pain [Unknown]
  - Abdominal distension [Unknown]

NARRATIVE: CASE EVENT DATE: 201509
